FAERS Safety Report 6920128-1 (Version None)
Quarter: 2010Q3

REPORT INFORMATION
  Report Type: 
  Country: None (occurrence: None)
  Receive Date: 20100730
  Receipt Date: 20100430
  Transmission Date: 20110219
  Serious: Yes (Death, Life-Threatening)
  Sender: FDA-Public Use
  Company Number: OMPQ-PR-1004S-0274

PATIENT
  Age: 83 Year
  Sex: Male
  Weight: 68.9014 kg

DRUGS (12)
  1. OMNIPAQUE 140 [Suspect]
     Indication: PRODUCT USED FOR UNKNOWN INDICATION
     Dosage: 200 ML, SINGLE DOSE, I.V.
     Route: 042
     Dates: start: 20091231, end: 20091231
  2. ANGIOMAX [Suspect]
     Dosage: 10.1 ML, SINGLE DOSE, I.V. ; 24.5 ML, INFUSED AT 1.75 MG/KG/HR, I.V.
     Route: 042
     Dates: start: 20091231, end: 20091231
  3. ANGIOMAX [Suspect]
     Dosage: 10.1 ML, SINGLE DOSE, I.V. ; 24.5 ML, INFUSED AT 1.75 MG/KG/HR, I.V.
     Route: 042
     Dates: start: 20091231, end: 20091231
  4. OXYCODONE HYDROCHLORIDE PARACETAMOL (PERCOCET) [Concomitant]
  5. FENTANYL CITRATE [Concomitant]
  6. PRAVASTATIN [Concomitant]
  7. ATORVASTATIN CALCIUM [Concomitant]
  8. COREG [Concomitant]
  9. CYANOCOBALAMIN [Concomitant]
  10. ZESTRIL [Concomitant]
  11. ESOMEPRAZOLE MAGNESIUM (NEXIUM) [Concomitant]
  12. AMBIEN [Concomitant]

REACTIONS (4)
  - ANAPHYLACTOID REACTION [None]
  - CARDIO-RESPIRATORY ARREST [None]
  - PRURITUS [None]
  - THROAT TIGHTNESS [None]
